FAERS Safety Report 15618879 (Version 1)
Quarter: 2018Q4

REPORT INFORMATION
  Report Type: Report from Study
  Country: US (occurrence: US)
  Receive Date: 20181114
  Receipt Date: 20181114
  Transmission Date: 20190205
  Serious: Yes (Other)
  Sender: FDA-Public Use
  Company Number: PHEH2018US047628

PATIENT
  Sex: Male

DRUGS (1)
  1. GLEEVEC [Suspect]
     Active Substance: IMATINIB MESYLATE
     Indication: PRODUCT USED FOR UNKNOWN INDICATION
     Dosage: 300 MG, QD
     Route: 065
     Dates: start: 2015

REACTIONS (6)
  - Myalgia [Unknown]
  - Weight decreased [Unknown]
  - Arthralgia [Unknown]
  - Fatigue [Unknown]
  - Hodgkin^s disease [Unknown]
  - Eye swelling [Unknown]
